APPROVED DRUG PRODUCT: MEROPENEM
Active Ingredient: MEROPENEM
Strength: 1GM/VIAL
Dosage Form/Route: INJECTABLE;INJECTION
Application: A210773 | Product #002 | TE Code: AP
Applicant: HQ SPECIALTY PHARMA CORP
Approved: Aug 16, 2019 | RLD: No | RS: No | Type: RX